FAERS Safety Report 25385796 (Version 3)
Quarter: 2025Q3

REPORT INFORMATION
  Report Type: Spontaneous
  Country: EU (occurrence: EU)
  Receive Date: 20250602
  Receipt Date: 20250909
  Transmission Date: 20251021
  Serious: Yes (Other)
  Sender: MERCK SHARP & DOHME LLC
  Company Number: EU-009507513-2290228

PATIENT
  Age: 47 Year
  Sex: Female

DRUGS (16)
  1. KEYTRUDA [Suspect]
     Active Substance: PEMBROLIZUMAB
     Indication: Squamous cell carcinoma of the cervix
     Dates: start: 20241216, end: 20241216
  2. KEYTRUDA [Suspect]
     Active Substance: PEMBROLIZUMAB
     Indication: Squamous cell carcinoma of the cervix
     Dates: start: 20250106, end: 20250106
  3. KEYTRUDA [Suspect]
     Active Substance: PEMBROLIZUMAB
     Indication: Squamous cell carcinoma of the cervix
     Dates: start: 20250206, end: 20250206
  4. KEYTRUDA [Suspect]
     Active Substance: PEMBROLIZUMAB
     Indication: Squamous cell carcinoma of the cervix
     Dates: start: 20250226, end: 20250226
  5. KEYTRUDA [Suspect]
     Active Substance: PEMBROLIZUMAB
     Indication: Squamous cell carcinoma of the cervix
     Dates: start: 20250319, end: 20250319
  6. KEYTRUDA [Suspect]
     Active Substance: PEMBROLIZUMAB
     Indication: Squamous cell carcinoma of the cervix
     Dates: start: 20250407, end: 20250407
  7. KEYTRUDA [Suspect]
     Active Substance: PEMBROLIZUMAB
     Indication: Squamous cell carcinoma of the cervix
     Dates: start: 20250521, end: 20250521
  8. CISPLATIN [Suspect]
     Active Substance: CISPLATIN
     Indication: Squamous cell carcinoma of the cervix
     Dates: start: 20241216, end: 20241216
  9. CISPLATIN [Suspect]
     Active Substance: CISPLATIN
     Indication: Squamous cell carcinoma of the cervix
     Dates: start: 20250106, end: 20250106
  10. CISPLATIN [Suspect]
     Active Substance: CISPLATIN
     Indication: Squamous cell carcinoma of the cervix
     Dates: start: 20250206, end: 20250206
  11. CISPLATIN [Suspect]
     Active Substance: CISPLATIN
     Indication: Squamous cell carcinoma of the cervix
     Dates: start: 20250226, end: 20250226
  12. CISPLATIN [Suspect]
     Active Substance: CISPLATIN
     Indication: Squamous cell carcinoma of the cervix
     Dates: start: 20250319, end: 20250319
  13. ACETAMINOPHEN [Concomitant]
     Active Substance: ACETAMINOPHEN
  14. IBUPROFEN [Concomitant]
     Active Substance: IBUPROFEN
  15. ONDANSETRON [Concomitant]
     Active Substance: ONDANSETRON
  16. TRAMADOL [Concomitant]
     Active Substance: TRAMADOL

REACTIONS (8)
  - Gastrointestinal toxicity [Unknown]
  - Neutropenia [Unknown]
  - Brachytherapy to uterus [Unknown]
  - Leukopenia [Unknown]
  - Brachytherapy to uterus [Unknown]
  - Brachytherapy to vagina [Unknown]
  - Anaemia [Unknown]
  - Brachytherapy to vagina [Unknown]

NARRATIVE: CASE EVENT DATE: 20250101
